FAERS Safety Report 7638474-5 (Version None)
Quarter: 2011Q3

REPORT INFORMATION
  Report Type: 
  Country: None (occurrence: None)
  Receive Date: 20110727
  Receipt Date: 20110624
  Transmission Date: 20111222
  Serious: No
  Sender: FDA-Public Use
  Company Number: US-BAYER-2011-056554

PATIENT
  Sex: Female

DRUGS (5)
  1. EXCEDRIN (MIGRAINE) [Concomitant]
  2. IMITREX [Concomitant]
     Dosage: DAILY DOSE 3 DF
  3. PERCOCET [Concomitant]
     Dosage: DAILY DOSE 4 DF
  4. ALEVE (CAPLET) [Suspect]
     Route: 048
  5. ADVIL LIQUI-GELS [Concomitant]

REACTIONS (1)
  - NO ADVERSE EVENT [None]
